FAERS Safety Report 17451398 (Version 3)
Quarter: 2020Q1

REPORT INFORMATION
  Report Type: Spontaneous
  Country: US (occurrence: US)
  Receive Date: 20200224
  Receipt Date: 20200325
  Transmission Date: 20200409
  Serious: No
  Sender: FDA-Public Use
  Company Number: US-PFIZER INC-2020079205

PATIENT

DRUGS (2)
  1. DETROL [Suspect]
     Active Substance: TOLTERODINE TARTRATE
     Indication: CYSTITIS INTERSTITIAL
     Dosage: UNK
  2. OXYBUTYNIN. [Suspect]
     Active Substance: OXYBUTYNIN CHLORIDE
     Dosage: UNK

REACTIONS (4)
  - Dry mouth [Unknown]
  - Off label use [Unknown]
  - Product use in unapproved indication [Unknown]
  - Drug effective for unapproved indication [Unknown]
